FAERS Safety Report 10328304 (Version 1)
Quarter: 2014Q3

REPORT INFORMATION
  Report Type: Spontaneous
  Country: US (occurrence: US)
  Receive Date: 20140721
  Receipt Date: 20140721
  Transmission Date: 20150326
  Serious: No
  Sender: FDA-Public Use
  Company Number: US-DRREDDYS-USA/USA/14/0040923

PATIENT
  Age: 23 Year
  Sex: Male
  Weight: 134.2 kg

DRUGS (1)
  1. ZENATANE [Suspect]
     Active Substance: ISOTRETINOIN
     Indication: ACNE CYSTIC
     Route: 048
     Dates: start: 20140418, end: 201405

REACTIONS (4)
  - Drug ineffective [Unknown]
  - Chapped lips [Recovering/Resolving]
  - Lip dry [Recovering/Resolving]
  - Product quality issue [Unknown]
